FAERS Safety Report 8896455 (Version 1)
Quarter: 2012Q4

REPORT INFORMATION
  Report Type: Spontaneous
  Country: AN (occurrence: None)
  Receive Date: 20121105
  Receipt Date: 20121105
  Transmission Date: 20130627
  Serious: Yes (Life-Threatening, Hospitalization, Other)
  Sender: FDA-Public Use
  Company Number: 2012P1061713

PATIENT
  Age: 41 Year
  Sex: Male

DRUGS (2)
  1. AMIODARONE [Suspect]
     Indication: VENTRICULAR FIBRILLATION
     Route: 042
  2. CARBAMAZEPINE [Suspect]
     Indication: EPILEPSY
     Dosage: 5 TIMES DAILY

REACTIONS (4)
  - Coma [None]
  - Toxicity to various agents [None]
  - Haemodialysis [None]
  - Inhibitory drug interaction [None]
